FAERS Safety Report 13727188 (Version 2)
Quarter: 2017Q3

REPORT INFORMATION
  Report Type: Report from Study
  Country: US (occurrence: US)
  Receive Date: 20170706
  Receipt Date: 20170803
  Transmission Date: 20171127
  Serious: Yes (Hospitalization)
  Sender: FDA-Public Use
  Company Number: US-ACTELION-A-US2017-156105

PATIENT
  Age: 42 Year
  Sex: Female

DRUGS (11)
  1. VALPROIC ACID. [Concomitant]
     Active Substance: VALPROIC ACID
     Dosage: 500 MG, QD
  2. IMIPRAMINE [Concomitant]
     Active Substance: IMIPRAMINE
     Dosage: 125 MG, QHS
  3. WARFARIN [Concomitant]
     Active Substance: WARFARIN
     Dosage: 2 MG, PRN
  4. FUROSEMIDE. [Concomitant]
     Active Substance: FUROSEMIDE
     Dosage: 20 MG, QD
  5. SPIRONOLACTONE APS [Concomitant]
     Dosage: 25 MG, QD
  6. METFORMIN [Concomitant]
     Active Substance: METFORMIN HYDROCHLORIDE
     Dosage: 250 MG, BID
  7. LOXAPINE. [Concomitant]
     Active Substance: LOXAPINE
     Dosage: 5 MG, QAM
  8. FERROUS SULFATE. [Concomitant]
     Active Substance: FERROUS SULFATE
     Dosage: 235 MG, QD
  9. OPSUMIT [Suspect]
     Active Substance: MACITENTAN
     Indication: PULMONARY ARTERIAL HYPERTENSION
     Dosage: 10 MG, QD
     Route: 048
     Dates: start: 20170503
  10. VELETRI [Suspect]
     Active Substance: EPOPROSTENOL
     Indication: PULMONARY ARTERIAL HYPERTENSION
     Dosage: UNK
     Route: 042
     Dates: start: 201703
  11. MIRENA [Concomitant]
     Active Substance: LEVONORGESTREL

REACTIONS (9)
  - Device related infection [Unknown]
  - Staphylococcus test positive [Unknown]
  - Erythema [Unknown]
  - Blood culture negative [Unknown]
  - Tenderness [Unknown]
  - Secretion discharge [Unknown]
  - Swelling [Unknown]
  - Catheter culture positive [Unknown]
  - Cellulitis [Unknown]

NARRATIVE: CASE EVENT DATE: 20170621
